FAERS Safety Report 24716979 (Version 3)
Quarter: 2025Q1

REPORT INFORMATION
  Report Type: Spontaneous
  Country: IL (occurrence: IL)
  Receive Date: 20241210
  Receipt Date: 20250109
  Transmission Date: 20250408
  Serious: Yes (Other)
  Sender: TERSERA THERAPEUTICS
  Company Number: IL-TERSERA THERAPEUTICS LLC-2024TRS006055

PATIENT

DRUGS (3)
  1. XERMELO [Suspect]
     Active Substance: TELOTRISTAT ETHYL
     Indication: Carcinoid syndrome
     Route: 048
     Dates: start: 20231008
  2. XERMELO [Suspect]
     Active Substance: TELOTRISTAT ETHYL
     Indication: Diarrhoea
     Route: 048
  3. XERMELO [Suspect]
     Active Substance: TELOTRISTAT ETHYL
     Indication: Neuroendocrine tumour
     Dosage: 250 MILLIGRAM EVERY 8 HOUR(S)
     Route: 048
     Dates: start: 20231008

REACTIONS (3)
  - Hepatic neoplasm [Not Recovered/Not Resolved]
  - Frequent bowel movements [Not Recovered/Not Resolved]
  - Diarrhoea [Not Recovered/Not Resolved]
